FAERS Safety Report 5238767-5 (Version None)
Quarter: 2007Q1

REPORT INFORMATION
  Report Type: 
  Country: None (occurrence: None)
  Receive Date: 20061208
  Receipt Date: 20050328
  Transmission Date: 20070707
  Serious: Yes (Other)
  Sender: FDA-Public Use
  Company Number: 2005UW03853

PATIENT
  Sex: Female

DRUGS (6)
  1. CRESTOR [Suspect]
     Indication: CORONARY ARTERY OCCLUSION
  2. CRESTOR [Suspect]
     Indication: CORONARY ARTERY OCCLUSION
     Dates: start: 20050328
  3. ZETIA [Concomitant]
  4. MICARDIS [Concomitant]
  5. COREG [Concomitant]
  6. NO MATCH [Concomitant]

REACTIONS (9)
  - ANOREXIA [None]
  - ASTHENIA [None]
  - COUGH [None]
  - EATING DISORDER [None]
  - INFLUENZA [None]
  - NAUSEA [None]
  - PAIN [None]
  - PYREXIA [None]
  - WEIGHT DECREASED [None]
